FAERS Safety Report 25516909 (Version 1)
Quarter: 2025Q3

REPORT INFORMATION
  Report Type: Other
  Country: US (occurrence: US)
  Receive Date: 20250704
  Receipt Date: 20250704
  Transmission Date: 20251021
  Serious: Yes (Death, Hospitalization)
  Sender: ESJAY PHARMA
  Company Number: US-ESJAY PHARMA-000791

PATIENT
  Age: 15 Year
  Sex: Male

DRUGS (6)
  1. METRONIDAZOLE [Suspect]
     Active Substance: METRONIDAZOLE
     Indication: Aspergillus infection
  2. VANCOMYCIN [Concomitant]
     Active Substance: VANCOMYCIN
     Indication: Aspergillus infection
  3. CEFEPIME [Concomitant]
     Active Substance: CEFEPIME HYDROCHLORIDE
     Indication: Aspergillus infection
  4. METRONIDAZOLE [Suspect]
     Active Substance: METRONIDAZOLE
     Indication: Duodenal perforation
  5. VANCOMYCIN [Concomitant]
     Active Substance: VANCOMYCIN
     Indication: Duodenal perforation
  6. CEFEPIME [Concomitant]
     Active Substance: CEFEPIME HYDROCHLORIDE
     Indication: Duodenal perforation

REACTIONS (1)
  - Drug ineffective [Fatal]
